FAERS Safety Report 5849445-3 (Version None)
Quarter: 2008Q3

REPORT INFORMATION
  Report Type: 
  Country: None (occurrence: None)
  Receive Date: 20080819
  Receipt Date: 20080812
  Transmission Date: 20090109
  Serious: Yes (Other)
  Sender: FDA-Public Use
  Company Number: US-BAYER-200811125BCC

PATIENT
  Age: 32 Year
  Sex: Female
  Weight: 98 kg

DRUGS (3)
  1. ALKA MINTS [Suspect]
     Indication: DYSPEPSIA
     Route: 048
     Dates: start: 20050901, end: 20060601
  2. BISOPROLOL FUMARATE [Concomitant]
  3. TRIVORA-21 [Concomitant]

REACTIONS (2)
  - HYPERTENSION [None]
  - PREMATURE LABOUR [None]
